FAERS Safety Report 21593365 (Version 1)
Quarter: 2022Q4

REPORT INFORMATION
  Report Type: Spontaneous
  Country: PL (occurrence: PL)
  Receive Date: 20221114
  Receipt Date: 20221114
  Transmission Date: 20230112
  Serious: Yes (Death, Life-Threatening, Hospitalization, Other)
  Sender: FDA-Public Use
  Company Number: PL-Accord-285833

PATIENT
  Age: 76 Year
  Sex: Female

DRUGS (1)
  1. METHOTREXATE [Suspect]
     Active Substance: METHOTREXATE
     Indication: Product used for unknown indication
     Dosage: PRESCRIBED DOSAGE BEING 15 MG PER WEEK, THE ACCUMULATED DOSE WAS 55 MG (2.5 MG TABLET TWICE A DAY

REACTIONS (16)
  - Respiratory failure [Fatal]
  - Electrolyte imbalance [Fatal]
  - Toxicity to various agents [Fatal]
  - Stenotrophomonas infection [Fatal]
  - Pneumonia [Fatal]
  - Enterococcal infection [Fatal]
  - Bone marrow failure [Fatal]
  - Coagulopathy [Fatal]
  - Hypoproteinaemia [Fatal]
  - Cardiac arrest [Fatal]
  - Pancytopenia [Fatal]
  - Fungal sepsis [Fatal]
  - Accidental overdose [Fatal]
  - Inappropriate schedule of product administration [Fatal]
  - Traumatic haemothorax [Fatal]
  - Aspergillus infection [Fatal]
